FAERS Safety Report 15013003 (Version 1)
Quarter: 2018Q2

REPORT INFORMATION
  Report Type: Spontaneous
  Country: US (occurrence: US)
  Receive Date: 20180522
  Receipt Date: 20180522
  Transmission Date: 20180711
  Serious: No
  Sender: FDA-Public Use
  Company Number: None

PATIENT
  Age: 75 Year
  Sex: 0

DRUGS (18)
  1. VALSARTAN. [Concomitant]
     Active Substance: VALSARTAN
  2. TAZAROTENE. [Concomitant]
     Active Substance: TAZAROTENE
  3. MOMETASONE [Concomitant]
     Active Substance: MOMETASONE
  4. GEMFIBROZIL. [Concomitant]
     Active Substance: GEMFIBROZIL
  5. ATORVASTATIN [Concomitant]
     Active Substance: ATORVASTATIN
  6. ZYTIGA [Suspect]
     Active Substance: ABIRATERONE ACETATE
     Indication: PROSTATE CANCER
     Route: 048
     Dates: start: 20180327
  7. JAUVIA [Concomitant]
  8. LORATADINE. [Concomitant]
     Active Substance: LORATADINE
  9. LANSOPRAZOLE. [Concomitant]
     Active Substance: LANSOPRAZOLE
  10. VITAMIN [Concomitant]
     Active Substance: VITAMINS
  11. FLOMAX [Concomitant]
     Active Substance: TAMSULOSIN HYDROCHLORIDE
  12. CHONDROITIN [Concomitant]
     Active Substance: CHONDROITIN
  13. BISOPROLOL [Concomitant]
     Active Substance: BISOPROLOL
  14. VENLAFAXINE [Concomitant]
     Active Substance: VENLAFAXINE HYDROCHLORIDE
  15. OYSCO [Concomitant]
  16. NABUMETONE. [Concomitant]
     Active Substance: NABUMETONE
  17. GLUCOSAMINE [Concomitant]
     Active Substance: GLUCOSAMINE
  18. METFORMIN [Concomitant]
     Active Substance: METFORMIN HYDROCHLORIDE

REACTIONS (1)
  - Asthenia [None]
